FAERS Safety Report 4648419-8 (Version None)
Quarter: 2005Q2

REPORT INFORMATION
  Report Type: 
  Country: None (occurrence: None)
  Receive Date: 20050429
  Receipt Date: 20050414
  Transmission Date: 20051028
  Serious: Yes (Other)
  Sender: FDA-Public Use
  Company Number: HQWYE025814APR05

PATIENT
  Age: 55 Year
  Sex: Female

DRUGS (2)
  1. CORDARONE [Suspect]
     Dosage: 800 MG 1X PER 1 DAY, ORAL
     Route: 048
  2. CAPTOPRIL [Suspect]

REACTIONS (2)
  - ANGIONEUROTIC OEDEMA [None]
  - URTICARIA [None]
